FAERS Safety Report 17174534 (Version 1)
Quarter: 2019Q4

REPORT INFORMATION
  Report Type: Spontaneous
  Country: CA (occurrence: CA)
  Receive Date: 20191219
  Receipt Date: 20191219
  Transmission Date: 20200122
  Serious: Yes (Other)
  Sender: FDA-Public Use
  Company Number: CA-ROCHE-2500984

PATIENT
  Sex: Male

DRUGS (2)
  1. CLONAZEPAM. [Suspect]
     Active Substance: CLONAZEPAM
     Indication: ANXIETY
     Route: 048
  2. CODEINE [Suspect]
     Active Substance: CODEINE
     Indication: DRUG ABUSE
     Route: 065

REACTIONS (5)
  - Glassy eyes [Unknown]
  - Drug abuse [Unknown]
  - Road traffic accident [Unknown]
  - Psychomotor skills impaired [Unknown]
  - Miosis [Unknown]
